FAERS Safety Report 6341974-1 (Version None)
Quarter: 2009Q3

REPORT INFORMATION
  Report Type: 
  Country: None (occurrence: None)
  Receive Date: 20090904
  Receipt Date: 20090825
  Transmission Date: 20100115
  Serious: Yes (Hospitalization, Other)
  Sender: FDA-Public Use
  Company Number: US-ELI_LILLY_AND_COMPANY-US200706006061

PATIENT
  Sex: Male
  Weight: 66.667 kg

DRUGS (4)
  1. ZYPREXA [Suspect]
     Indication: SCHIZOPHRENIA
     Dosage: 5 MG, EACH MORNING
     Dates: start: 20021205, end: 20030315
  2. ZYPREXA [Suspect]
     Dosage: 10 MG, EACH EVENING
     Dates: start: 20021205, end: 20030315
  3. ZYPREXA [Suspect]
     Dosage: 10 MG, UNK
     Dates: start: 20030325, end: 20030404
  4. DEPAKOTE [Concomitant]
     Dates: start: 20021205

REACTIONS (10)
  - DIABETIC COMA [None]
  - DIABETIC KETOACIDOSIS [None]
  - HYPERCHOLESTEROLAEMIA [None]
  - KETONURIA [None]
  - METABOLIC DISORDER [None]
  - METABOLIC ENCEPHALOPATHY [None]
  - ORGAN FAILURE [None]
  - PANCREATITIS [None]
  - RENAL FAILURE ACUTE [None]
  - TYPE 1 DIABETES MELLITUS [None]
